FAERS Safety Report 23327150 (Version 2)
Quarter: 2023Q4

REPORT INFORMATION
  Report Type: Spontaneous
  Country: IT (occurrence: None)
  Receive Date: 20231221
  Receipt Date: 20231228
  Transmission Date: 20240110
  Serious: Yes (Death)
  Sender: FDA-Public Use
  Company Number: IT-ROCHE-3475366

PATIENT
  Sex: Female

DRUGS (1)
  1. OCREVUS [Suspect]
     Active Substance: OCRELIZUMAB
     Indication: Multiple sclerosis
     Dosage: RECEIVED THE SECOND 300 MG INFUSION ON 07/DEC/2023
     Route: 065
     Dates: start: 20231121

REACTIONS (1)
  - Cardiac failure [Fatal]
